FAERS Safety Report 9410131 (Version 1)
Quarter: 2013Q3

REPORT INFORMATION
  Report Type: Spontaneous
  Country: ES (occurrence: ES)
  Receive Date: 20130719
  Receipt Date: 20130719
  Transmission Date: 20140515
  Serious: Yes (Death)
  Sender: FDA-Public Use
  Company Number: ES-ROCHE-1249872

PATIENT
  Age: 66 Year
  Sex: Female

DRUGS (5)
  1. ACTILYSE [Suspect]
     Indication: CEREBROVASCULAR ACCIDENT
     Route: 040
     Dates: start: 20130520, end: 20130520
  2. DACORTIN [Concomitant]
  3. OMEPRAZOL [Concomitant]
  4. PARACETAMOL [Concomitant]
  5. IBUPROFENO [Concomitant]

REACTIONS (2)
  - Haemorrhage intracranial [Fatal]
  - Coma [Fatal]
